FAERS Safety Report 8346958-X (Version None)
Quarter: 2012Q2

REPORT INFORMATION
  Report Type: 
  Country: None (occurrence: None)
  Receive Date: 20120509
  Receipt Date: 20120430
  Transmission Date: 20120825
  Serious: Yes (Hospitalization)
  Sender: FDA-Public Use
  Company Number: IN-SANOFI-AVENTIS-2012SA032448

PATIENT
  Age: 52 Year
  Sex: Female

DRUGS (5)
  1. ISONIAZID [Concomitant]
     Indication: PULMONARY TUBERCULOSIS
  2. ETHAMBUTOL HYDROCHLORIDE [Concomitant]
     Indication: PULMONARY TUBERCULOSIS
  3. AMLODIPINE [Concomitant]
     Indication: HYPERTENSION
  4. RIFAMPICIN [Suspect]
     Indication: PULMONARY TUBERCULOSIS
     Route: 065
  5. PYRAZINAMIDE [Concomitant]
     Indication: PULMONARY TUBERCULOSIS

REACTIONS (1)
  - ACCELERATED HYPERTENSION [None]
